FAERS Safety Report 15456449 (Version 1)
Quarter: 2018Q3

REPORT INFORMATION
  Report Type: Spontaneous
  Country: US (occurrence: US)
  Receive Date: 20180928
  Receipt Date: 20180928
  Transmission Date: 20181010
  Serious: Yes (Death, Life-Threatening, Hospitalization)
  Sender: FDA-Public Use
  Company Number: None

PATIENT
  Age: 75 Year
  Sex: Female
  Weight: 63 kg

DRUGS (3)
  1. VALSARTAN. [Suspect]
     Active Substance: VALSARTAN
     Indication: HYPERTENSION
     Dates: start: 20180401, end: 20180813
  2. LOSARTAN. [Concomitant]
     Active Substance: LOSARTAN
     Dates: start: 20180801, end: 20180805
  3. OLMESARTAN [Concomitant]
     Active Substance: OLMESARTAN
     Dates: start: 20180805, end: 20180813

REACTIONS (6)
  - Cardiac arrest [None]
  - Thrombocytopenia [None]
  - Agranulocytosis [None]
  - Respiratory failure [None]
  - Drug-induced liver injury [None]
  - Acute kidney injury [None]

NARRATIVE: CASE EVENT DATE: 20180812
